FAERS Safety Report 7116072-X (Version None)
Quarter: 2010Q4

REPORT INFORMATION
  Report Type: 
  Country: None (occurrence: None)
  Receive Date: 20101122
  Receipt Date: 20080430
  Transmission Date: 20110411
  Serious: Yes (Other)
  Sender: FDA-Public Use
  Company Number: FI-ROCHE-741164

PATIENT

DRUGS (1)
  1. AVASTIN [Suspect]
     Route: 065
     Dates: start: 20070101

REACTIONS (1)
  - DISEASE PROGRESSION [None]
